FAERS Safety Report 12758398 (Version 1)
Quarter: 2016Q3

REPORT INFORMATION
  Report Type: Spontaneous
  Country: US (occurrence: US)
  Receive Date: 20160917
  Receipt Date: 20160917
  Transmission Date: 20161109
  Serious: Yes (Disabling, Other)
  Sender: FDA-Public Use
  Company Number: None

PATIENT
  Age: 52 Year
  Sex: Female
  Weight: 81 kg

DRUGS (2)
  1. LYRICA [Suspect]
     Active Substance: PREGABALIN
     Indication: PAIN IN EXTREMITY
     Route: 048
     Dates: start: 20160907, end: 20160909
  2. LYRICA [Suspect]
     Active Substance: PREGABALIN
     Indication: ANKYLOSING SPONDYLITIS
     Route: 048
     Dates: start: 20160907, end: 20160909

REACTIONS (7)
  - Blister [None]
  - Dysphagia [None]
  - Drug hypersensitivity [None]
  - Dysphonia [None]
  - Oral pain [None]
  - Oropharyngeal pain [None]
  - Glossodynia [None]

NARRATIVE: CASE EVENT DATE: 20160910
